FAERS Safety Report 19184893 (Version 1)
Quarter: 2021Q2

REPORT INFORMATION
  Report Type: Spontaneous
  Country: ES (occurrence: ES)
  Receive Date: 20210427
  Receipt Date: 20210427
  Transmission Date: 20210717
  Serious: Yes (Other)
  Sender: FDA-Public Use
  Company Number: ES-MYLANLABS-2021M1024254

PATIENT
  Sex: Female

DRUGS (1)
  1. DALSY [Suspect]
     Active Substance: IBUPROFEN
     Indication: PRODUCT USED FOR UNKNOWN INDICATION
     Dosage: UNK

REACTIONS (4)
  - Liver injury [Unknown]
  - Gastrointestinal injury [Unknown]
  - Loss of personal independence in daily activities [Unknown]
  - Vascular malformation [Unknown]
